FAERS Safety Report 7508108-9 (Version None)
Quarter: 2011Q2

REPORT INFORMATION
  Report Type: 
  Country: None (occurrence: None)
  Receive Date: 20110527
  Receipt Date: 20110117
  Transmission Date: 20111010
  Serious: Yes (Hospitalization)
  Sender: FDA-Public Use
  Company Number: US-BAYER-201040046NA

PATIENT
  Age: 37 Year
  Sex: Female
  Weight: 69.841 kg

DRUGS (13)
  1. YASMIN [Suspect]
     Indication: CONTRACEPTION
     Dosage: UNK
     Route: 048
     Dates: start: 20010101, end: 20081201
  2. PLAVIX [Concomitant]
     Dosage: 75 MG, UNK
     Route: 048
  3. LIPITOR [Concomitant]
     Dosage: 40 MG, UNK
     Route: 048
  4. PROTONIX [Concomitant]
     Dosage: 40 MG, UNK
     Route: 048
  5. YASMIN [Suspect]
     Indication: PREMENSTRUAL SYNDROME
  6. TOPROL-XL [Concomitant]
     Dosage: 200 MG, UNK
     Route: 048
  7. NORVASC [Concomitant]
     Dosage: 5 MG, UNK
     Route: 048
  8. LIPITOR [Concomitant]
     Dosage: 80 MG, UNK
  9. DAYQUIL [DEXTROMET HBR,PARACET,PSEUDOEPH HCL] [Concomitant]
     Indication: UPPER RESPIRATORY TRACT INFECTION
     Dosage: UNK
     Dates: end: 20081225
  10. ASPIRIN [Concomitant]
     Dosage: 81 MG, UNK
     Route: 048
  11. YAZ [Suspect]
     Indication: CONTRACEPTION
     Route: 048
     Dates: start: 20070901, end: 20081201
  12. HALOBETASOL PROPIONATE [Concomitant]
     Indication: PSORIASIS
     Dosage: 0.5 %, BID
  13. YAZ [Suspect]
     Indication: PREMENSTRUAL SYNDROME
     Dosage: UNK
     Route: 048
     Dates: start: 20010101, end: 20081201

REACTIONS (1)
  - ACUTE MYOCARDIAL INFARCTION [None]
